FAERS Safety Report 7806583-3 (Version None)
Quarter: 2011Q4

REPORT INFORMATION
  Report Type: 
  Country: None (occurrence: None)
  Receive Date: 20111007
  Receipt Date: 20111007
  Transmission Date: 20120403
  Serious: Yes (Hospitalization)
  Sender: FDA-Public Use
  Company Number: None

PATIENT
  Sex: Female
  Weight: 97.97 kg

DRUGS (11)
  1. NITROGLYCERIN [Concomitant]
  2. CARBOPLATIN [Suspect]
     Dosage: 449 MG
  3. CIPRO [Concomitant]
  4. LOPRESSOR [Concomitant]
  5. ONDANSETRON (ZOFRAN ODT) [Concomitant]
  6. ASPIRIN (ADULT LOW DOSE ASPIRIN) [Concomitant]
  7. PROCHLORPERAZINE MALEATE (COMPAZINE) [Concomitant]
  8. TAXOL [Suspect]
     Dosage: 350 MG
  9. CHOLECALCIFEROL (VITAMIN D3) (VITAMIN D) [Concomitant]
  10. ISOSORBIDE DINITRATE (ISORDIL) [Concomitant]
  11. DECADRON [Concomitant]

REACTIONS (11)
  - DECREASED APPETITE [None]
  - CHILLS [None]
  - MYALGIA [None]
  - PYELONEPHRITIS [None]
  - DIARRHOEA [None]
  - URINE ANALYSIS ABNORMAL [None]
  - SCAN [None]
  - COLITIS [None]
  - PYREXIA [None]
  - DEHYDRATION [None]
  - ENTEROCOCCAL INFECTION [None]
